FAERS Safety Report 17847875 (Version 2)
Quarter: 2025Q3

REPORT INFORMATION
  Report Type: Spontaneous
  Country: US (occurrence: US)
  Receive Date: 20200601
  Receipt Date: 20250728
  Transmission Date: 20251020
  Serious: Yes (Other)
  Sender: PURDUE
  Company Number: US-NAPPMUNDI-USA-2020-0153630

PATIENT
  Age: 38 Year
  Sex: Female

DRUGS (1)
  1. OXYCONTIN [Suspect]
     Active Substance: OXYCODONE HYDROCHLORIDE
     Indication: Product used for unknown indication
     Route: 048

REACTIONS (23)
  - Drug dependence [Unknown]
  - Bipolar I disorder [Unknown]
  - Sinus node dysfunction [Unknown]
  - Splenectomy [Unknown]
  - Embolism [Unknown]
  - Angle closure glaucoma [Unknown]
  - Implantable defibrillator insertion [Unknown]
  - Polyarthritis [Unknown]
  - Polyneuropathy chronic [Unknown]
  - Lymphadenopathy mediastinal [Unknown]
  - Obstructive sleep apnoea syndrome [Unknown]
  - Venous thrombosis [Unknown]
  - Psoriasis [Unknown]
  - Post-traumatic stress disorder [Unknown]
  - Latent tuberculosis [Unknown]
  - Vitamin D deficiency [Unknown]
  - Cognitive disorder [Unknown]
  - Fibromyalgia [Unknown]
  - Dyspepsia [Unknown]
  - Large intestine polyp [Unknown]
  - Erythema nodosum [Unknown]
  - Pain [Unknown]
  - Burning mouth syndrome [Unknown]

NARRATIVE: CASE EVENT DATE: 20040324
